FAERS Safety Report 5507417-2 (Version None)
Quarter: 2007Q4

REPORT INFORMATION
  Report Type: 
  Country: None (occurrence: None)
  Receive Date: 20071106
  Receipt Date: 20071022
  Transmission Date: 20080405
  Serious: Yes (Hospitalization)
  Sender: FDA-Public Use
  Company Number: US-AMGEN-US249047

PATIENT
  Sex: Female
  Weight: 74.5 kg

DRUGS (6)
  1. NEULASTA [Suspect]
     Indication: CHEMOTHERAPY
     Route: 058
     Dates: start: 20070830
  2. GEMCITABINE [Concomitant]
     Route: 042
     Dates: start: 20070913
  3. ABRAXANE [Concomitant]
     Route: 042
     Dates: start: 20070913
  4. ALBUTEROL [Concomitant]
     Indication: ASTHMA
     Route: 065
     Dates: start: 20000101
  5. SINGULAIR [Concomitant]
     Indication: ASTHMA
     Route: 065
     Dates: start: 20070830
  6. POTASSIUM CHLORIDE [Concomitant]
     Route: 065
     Dates: start: 20070719

REACTIONS (1)
  - ANGINA PECTORIS [None]
